FAERS Safety Report 5651749-4 (Version None)
Quarter: 2008Q1

REPORT INFORMATION
  Report Type: 
  Country: None (occurrence: None)
  Receive Date: 20080305
  Receipt Date: 20080227
  Transmission Date: 20080703
  Serious: Yes (Hospitalization)
  Sender: FDA-Public Use
  Company Number: US-BAXTER-2008BH001560

PATIENT
  Age: 71 Year
  Sex: Male
  Weight: 88 kg

DRUGS (9)
  1. ARALAST [Suspect]
     Indication: ALPHA-1 ANTI-TRYPSIN DEFICIENCY
     Dosage: DOSE UNIT:UNKNOWN
     Route: 042
     Dates: start: 20080206, end: 20080206
  2. ARALAST [Suspect]
     Route: 042
     Dates: start: 20070901
  3. ALLOPURINOL [Concomitant]
     Indication: GOUT
     Route: 048
  4. LOVASTATIN [Concomitant]
     Indication: BLOOD CHOLESTEROL
     Route: 048
  5. BENAZEPRIL HYDROCHLORIDE [Concomitant]
     Indication: BLOOD PRESSURE
     Route: 048
  6. OMACOR [Concomitant]
     Indication: BLOOD TRIGLYCERIDES
     Route: 048
  7. SEREVENT [Concomitant]
     Indication: LUNG DISORDER
     Route: 048
  8. ADVAIR DISKUS 100/50 [Concomitant]
     Indication: LUNG DISORDER
     Route: 048
  9. NIACIN [Concomitant]
     Indication: DRUG USE FOR UNKNOWN INDICATION
     Route: 048

REACTIONS (4)
  - FEELING ABNORMAL [None]
  - LETHARGY [None]
  - PANCREATITIS [None]
  - SOMNOLENCE [None]
